FAERS Safety Report 21370138 (Version 3)
Quarter: 2022Q4

REPORT INFORMATION
  Report Type: Report from Study
  Country: US (occurrence: US)
  Receive Date: 20220923
  Receipt Date: 20221013
  Transmission Date: 20230113
  Serious: Yes (Other)
  Sender: FDA-Public Use
  Company Number: US-ABBVIE-4128049

PATIENT
  Sex: Female

DRUGS (4)
  1. HUMIRA [Suspect]
     Active Substance: ADALIMUMAB
     Indication: Crohn^s disease
     Route: 058
     Dates: start: 2012
  2. Covid-19 Vaccine Pfizer/BioNtech [Concomitant]
     Indication: COVID-19 immunisation
     Route: 030
  3. Covid-19 Vaccine Pfizer/BioNtech [Concomitant]
     Indication: COVID-19 immunisation
     Dosage: ONCE
     Route: 030
  4. HUMIRA [Suspect]
     Active Substance: ADALIMUMAB

REACTIONS (6)
  - Neoplasm malignant [Unknown]
  - Surgery [Unknown]
  - Pain [Unknown]
  - Anal fistula [Not Recovered/Not Resolved]
  - Limb injury [Unknown]
  - Device issue [Not Recovered/Not Resolved]

NARRATIVE: CASE EVENT DATE: 20160101
